FAERS Safety Report 10195757 (Version 2)
Quarter: 2014Q2

REPORT INFORMATION
  Report Type: Spontaneous
  Country: CA (occurrence: CA)
  Receive Date: 20140527
  Receipt Date: 20140530
  Transmission Date: 20141212
  Serious: Yes (Hospitalization)
  Sender: FDA-Public Use
  Company Number: CA-ROCHE-1407040

PATIENT
  Sex: Female

DRUGS (1)
  1. XOLAIR [Suspect]
     Indication: OFF LABEL USE
     Route: 058
     Dates: start: 201405

REACTIONS (3)
  - General physical health deterioration [Unknown]
  - Pharyngeal oedema [Unknown]
  - Eye swelling [Unknown]
